FAERS Safety Report 15746099 (Version 1)
Quarter: 2018Q4

REPORT INFORMATION
  Report Type: Report from Study
  Country: US (occurrence: US)
  Receive Date: 20181220
  Receipt Date: 20181220
  Transmission Date: 20190205
  Serious: Yes (Hospitalization)
  Sender: FDA-Public Use
  Company Number: US-ACTELION-A-US2015-113255

PATIENT
  Age: 57 Year
  Sex: Female
  Weight: 106.58 kg

DRUGS (1)
  1. OPSUMIT [Suspect]
     Active Substance: MACITENTAN
     Indication: PULMONARY HYPERTENSION
     Dosage: 10 MG, QD
     Route: 048

REACTIONS (6)
  - Dialysis [Unknown]
  - Renal failure [Unknown]
  - Vein collapse [Unknown]
  - Cough [Unknown]
  - Blood potassium increased [Unknown]
  - Surgery [Unknown]

NARRATIVE: CASE EVENT DATE: 20181109
